FAERS Safety Report 6341715-8 (Version None)
Quarter: 2009Q3

REPORT INFORMATION
  Report Type: 
  Country: None (occurrence: None)
  Receive Date: 20090904
  Receipt Date: 20090825
  Transmission Date: 20100115
  Serious: Yes (Hospitalization)
  Sender: FDA-Public Use
  Company Number: US-ELI_LILLY_AND_COMPANY-US200908006335

PATIENT
  Age: 56 Year
  Sex: Female

DRUGS (17)
  1. CYMBALTA [Suspect]
     Dosage: 60 MG, DAILY (1/D)
     Dates: start: 20090601, end: 20090825
  2. RISPERDAL [Concomitant]
  3. WELLBUTRIN [Concomitant]
  4. EFFEXOR [Concomitant]
     Dates: start: 20090101
  5. NEURONTIN [Concomitant]
  6. KLONOPIN [Concomitant]
  7. TOPAMAX [Concomitant]
  8. DEPAKOTE [Concomitant]
     Dosage: 500 MG, DAILY (1/D)
  9. PERCOCET [Concomitant]
     Dosage: UNK, OTHER
  10. PROPRANOLOL [Concomitant]
  11. PREVACID [Concomitant]
  12. ENDOCET [Concomitant]
  13. PAXIL [Concomitant]
  14. ATENOLOL [Concomitant]
     Indication: HYPERTENSION
  15. CALCIUM [Concomitant]
  16. AMBIEN [Concomitant]
     Dosage: UNK, AS NEEDED
  17. OXYCODONE [Concomitant]

REACTIONS (2)
  - ADVERSE EVENT [None]
  - COLITIS ISCHAEMIC [None]
